FAERS Safety Report 9220304 (Version 1)
Quarter: 2013Q1

REPORT INFORMATION
  Report Type: Spontaneous
  Country: US (occurrence: None)
  Receive Date: 20120831
  Receipt Date: 20120831
  Transmission Date: 20140127
  Serious: No
  Sender: FDA-Public Use
  Company Number: 1000036647

PATIENT
  Age: 49 Year
  Sex: Female

DRUGS (7)
  1. DALIRESP (ROFLUMILAST) (500 MICROGRAM, TABLETS) [Suspect]
     Indication: CHRONIC OBSTRUCTIVE PULMONARY DISEASE
     Dosage: 500 MCG ( 500 MCG, 1 IN 1 D), ORAL
     Route: 048
     Dates: start: 20120617
  2. SINGULAIR [Concomitant]
  3. COUMADIN ( WARFARIN) ( WARFARIN) [Concomitant]
  4. LISINOPRIL ( LISINOPRIL) ( LISINOPRIL) [Concomitant]
  5. MAXZIDE ( DYAZIDE) ( DYAZIDE) [Concomitant]
  6. PREVACID ( LANSOPRAZOLE) ( LANSOPRAZOLE) [Concomitant]
  7. IMURAN ( AZATHIOPRINE) ( AZATHIOPRINE) [Concomitant]

REACTIONS (5)
  - Diarrhoea [None]
  - Nausea [None]
  - Influenza like illness [None]
  - Decreased appetite [None]
  - Dizziness [None]
